FAERS Safety Report 5042233-X (Version None)
Quarter: 2006Q3

REPORT INFORMATION
  Report Type: 
  Country: None (occurrence: None)
  Receive Date: 20060705
  Receipt Date: 20060622
  Transmission Date: 20061208
  Serious: Yes (Hospitalization)
  Sender: FDA-Public Use
  Company Number: US-JNJFOC-20060605243

PATIENT
  Age: 62 Year
  Sex: Male

DRUGS (12)
  1. REOPRO [Suspect]
     Dosage: 10 MG/MIN INFUSION FOR 12 HOURS
  2. REOPRO [Suspect]
     Indication: ACUTE MYOCARDIAL INFARCTION
  3. HEPARIN [Concomitant]
     Indication: ACUTE MYOCARDIAL INFARCTION
  4. METHYLPREDNISOLONE [Concomitant]
     Indication: PROPHYLAXIS
  5. DIPHENHYDRAMINE HCL [Concomitant]
     Indication: PROPHYLAXIS
  6. COUMADIN [Concomitant]
  7. CAPTOPRIL [Concomitant]
  8. CAPTOPRIL [Concomitant]
  9. METOPROLOL TARTRATE [Concomitant]
  10. METOPROLOL TARTRATE [Concomitant]
  11. ASPIRIN [Concomitant]
  12. INSULIN [Concomitant]

REACTIONS (5)
  - APNOEA [None]
  - CEREBRAL INFARCTION [None]
  - HYPERHIDROSIS [None]
  - INFARCTION [None]
  - THROMBOCYTOPENIA [None]
